FAERS Safety Report 8248547-4 (Version None)
Quarter: 2012Q1

REPORT INFORMATION
  Report Type: 
  Country: None (occurrence: None)
  Receive Date: 20120330
  Receipt Date: 20120315
  Transmission Date: 20120608
  Serious: Yes (Other)
  Sender: FDA-Public Use
  Company Number: US-BAXTER-2012BH006899

PATIENT
  Sex: Female

DRUGS (3)
  1. GAMMAGARD LIQUID [Suspect]
  2. GAMMAGARD LIQUID [Suspect]
     Indication: MYASTHENIA GRAVIS
     Route: 042
  3. GAMMAGARD LIQUID [Suspect]
     Indication: IMMUNOSUPPRESSION

REACTIONS (4)
  - CYSTITIS [None]
  - MENINGITIS [None]
  - HEADACHE [None]
  - DEHYDRATION [None]
